FAERS Safety Report 6654502-8 (Version None)
Quarter: 2010Q1

REPORT INFORMATION
  Report Type: 
  Country: None (occurrence: None)
  Receive Date: 20100326
  Receipt Date: 20100316
  Transmission Date: 20100710
  Serious: Yes (Hospitalization)
  Sender: FDA-Public Use
  Company Number: US-PFIZER INC-2006034373

PATIENT
  Sex: Male
  Weight: 93 kg

DRUGS (22)
  1. SUNITINIB MALATE [Suspect]
     Indication: RENAL CELL CARCINOMA
     Route: 048
     Dates: start: 20051026, end: 20051122
  2. SUNITINIB MALATE [Suspect]
     Route: 048
     Dates: start: 20051209
  3. DOXEPIN HCL [Suspect]
     Dosage: 20 MG, 1 OR 2 TABLETS AT BEDTIME
     Route: 048
     Dates: start: 19970101
  4. HYDROCODONE [Suspect]
     Dosage: 2 TABLETS,AT BEDTIME
     Route: 048
     Dates: start: 20000101, end: 20051221
  5. DIAZEPAM [Suspect]
     Dosage: 5+2.5MG,AT BEDTIME
     Route: 048
     Dates: start: 19990101
  6. ZOLPIDEM TARTRATE [Suspect]
     Dosage: 1 OR 2 TABLETS AT BEDTIME
     Route: 048
     Dates: start: 19990101
  7. OXYCONTIN [Concomitant]
     Dosage: 40 MG, UNK
     Route: 048
     Dates: start: 20050101
  8. METFORMIN HYDROCHLORIDE [Concomitant]
     Route: 048
     Dates: start: 20050101
  9. LANTUS [Concomitant]
     Dosage: 8 UNITS, 1 X DAY
     Route: 058
     Dates: start: 20050101
  10. LIPITOR [Concomitant]
     Route: 048
     Dates: start: 19940101
  11. ZETIA [Concomitant]
     Route: 048
     Dates: start: 19950101
  12. ALTACE [Concomitant]
     Route: 048
     Dates: start: 19950101
  13. ATENOLOL [Concomitant]
     Route: 048
     Dates: start: 19940101
  14. TAMSULOSIN HYDROCHLORIDE [Concomitant]
     Route: 048
     Dates: start: 20020101
  15. PROSCAR [Concomitant]
     Route: 048
     Dates: start: 20020101
  16. ZANTAC [Concomitant]
     Route: 048
     Dates: start: 19960101
  17. MONTELUKAST SODIUM [Concomitant]
     Route: 048
     Dates: start: 19950101
  18. SEREVENT [Concomitant]
     Route: 055
     Dates: start: 19990101
  19. FLOVENT [Concomitant]
     Dosage: '
     Route: 055
     Dates: start: 20050101
  20. ACTIGALL [Concomitant]
     Route: 048
     Dates: start: 19900101
  21. REMERON [Concomitant]
     Dosage: AT BEDTIME
     Route: 048
     Dates: start: 19950101
  22. STOOL SOFTENER [Concomitant]
     Route: 048
     Dates: start: 20010101

REACTIONS (7)
  - CHILLS [None]
  - CONFUSIONAL STATE [None]
  - ENCEPHALOPATHY [None]
  - HYPOTENSION [None]
  - MENTAL IMPAIRMENT [None]
  - PYREXIA [None]
  - SOMNOLENCE [None]
